FAERS Safety Report 6130953-5 (Version None)
Quarter: 2009Q1

REPORT INFORMATION
  Report Type: 
  Country: None (occurrence: None)
  Receive Date: 20090323
  Receipt Date: 20090310
  Transmission Date: 20090719
  Serious: Yes (Hospitalization)
  Sender: FDA-Public Use
  Company Number: 004834

PATIENT
  Age: 76 Year
  Sex: Male
  Weight: 68 kg

DRUGS (2)
  1. PLETAL [Suspect]
     Indication: CEREBRAL INFARCTION
  2. IBURONOL (IFENPRODIL TARTRATE) TABLET, 10 MG [Concomitant]

REACTIONS (3)
  - LYMPHOCYTE STIMULATION TEST POSITIVE [None]
  - MOUTH HAEMORRHAGE [None]
  - THROMBOCYTOPENIA [None]
